FAERS Safety Report 7624964-8 (Version None)
Quarter: 2011Q3

REPORT INFORMATION
  Report Type: 
  Country: None (occurrence: None)
  Receive Date: 20110721
  Receipt Date: 20110709
  Transmission Date: 20111222
  Serious: Yes (Other)
  Sender: FDA-Public Use
  Company Number: US-PAR PHARMACEUTICAL, INC-2011SCPR003113

PATIENT

DRUGS (2)
  1. BROMOCRIPTINE MESYLATE [Suspect]
     Indication: PROLACTINOMA
     Dosage: 22.5 MG/D
     Route: 065
  2. CABERGOLINE [Suspect]
     Indication: PROLACTINOMA
     Dosage: 2.25 MG, WEEKLY
     Route: 065

REACTIONS (2)
  - IMPULSE-CONTROL DISORDER [None]
  - SUICIDE ATTEMPT [None]
